FAERS Safety Report 7196262-0 (Version None)
Quarter: 2010Q4

REPORT INFORMATION
  Report Type: 
  Country: None (occurrence: None)
  Receive Date: 20101223
  Receipt Date: 20101019
  Transmission Date: 20110411
  Serious: No
  Sender: FDA-Public Use
  Company Number: US-AMGEN-USASP2010001612

PATIENT

DRUGS (4)
  1. ENBREL [Suspect]
     Indication: PRODUCT USED FOR UNKNOWN INDICATION
  2. PLAQUENIL [Concomitant]
     Dosage: 200 MG, UNK
  3. NEXIUM [Concomitant]
     Dosage: 20 MG, UNK
  4. VITAMIN A [Concomitant]
     Dosage: UNK UNIT, UNK

REACTIONS (1)
  - INFECTION [None]
